FAERS Safety Report 9137213 (Version 3)
Quarter: 2013Q2

REPORT INFORMATION
  Report Type: Spontaneous
  Country: US (occurrence: US)
  Receive Date: 20130304
  Receipt Date: 20130617
  Transmission Date: 20140414
  Serious: Yes (Hospitalization)
  Sender: FDA-Public Use
  Company Number: US-ELI_LILLY_AND_COMPANY-US201302008699

PATIENT
  Sex: Female
  Weight: 58.5 kg

DRUGS (5)
  1. FORTEO [Suspect]
     Indication: OSTEOPOROSIS
     Dosage: 20 UG, QD
     Route: 058
     Dates: start: 20121121
  2. FORTEO [Suspect]
     Dosage: 20 UG, QD
     Route: 058
     Dates: start: 20121121
  3. GABAPENTIN [Concomitant]
     Dosage: 100 MG, EVERY HOUR
  4. LISINOPRIL [Concomitant]
     Dosage: 10 MG, QD
  5. ASPIRIN [Concomitant]
     Dosage: 81 MG, QD

REACTIONS (1)
  - Urinary tract infection [Recovered/Resolved]
